FAERS Safety Report 9862616 (Version 2)
Quarter: 2015Q1

REPORT INFORMATION
  Report Type: Spontaneous
  Country: CO (occurrence: CO)
  Receive Date: 20140203
  Receipt Date: 20150302
  Transmission Date: 20150721
  Serious: Yes (Other)
  Sender: FDA-Public Use
  Company Number: CO-PFIZER INC-2014028221

PATIENT
  Age: 45 Year
  Sex: Female

DRUGS (13)
  1. HYDROCORTISONE SODIUM SUCCINATE [Suspect]
     Active Substance: HYDROCORTISONE SODIUM SUCCINATE
     Indication: DRY SKIN
     Dosage: UNK
  2. BETAMETHASONE [Suspect]
     Active Substance: BETAMETHASONE
     Indication: LIP DRY
  3. ENBREL [Suspect]
     Active Substance: ETANERCEPT
     Indication: RHEUMATOID ARTHRITIS
     Dosage: 50 MG, WEEKLY
     Route: 058
     Dates: start: 20120507
  4. ACICLOVIR [Suspect]
     Active Substance: ACYCLOVIR
     Indication: DRY SKIN
     Dosage: UNK
  5. ACICLOVIR [Suspect]
     Active Substance: ACYCLOVIR
     Indication: LIP DRY
  6. ACICLOVIR [Suspect]
     Active Substance: ACYCLOVIR
     Indication: PRURITUS
  7. HYDROCORTISONE SODIUM SUCCINATE [Suspect]
     Active Substance: HYDROCORTISONE SODIUM SUCCINATE
     Indication: PRURITUS
  8. BETAMETHASONE [Suspect]
     Active Substance: BETAMETHASONE
     Indication: PRURITUS
  9. BETAMETHASONE [Suspect]
     Active Substance: BETAMETHASONE
     Indication: LIP PRURITUS
  10. ACICLOVIR [Suspect]
     Active Substance: ACYCLOVIR
     Indication: LIP PRURITUS
  11. HYDROCORTISONE SODIUM SUCCINATE [Suspect]
     Active Substance: HYDROCORTISONE SODIUM SUCCINATE
     Indication: LIP PRURITUS
  12. BETAMETHASONE [Suspect]
     Active Substance: BETAMETHASONE
     Indication: DRY SKIN
     Dosage: UNK
  13. HYDROCORTISONE SODIUM SUCCINATE [Suspect]
     Active Substance: HYDROCORTISONE SODIUM SUCCINATE
     Indication: LIP DRY

REACTIONS (10)
  - Pruritus [Not Recovered/Not Resolved]
  - Lip pain [Not Recovered/Not Resolved]
  - Pain of skin [Not Recovered/Not Resolved]
  - Drug ineffective [Unknown]
  - Eye pruritus [Not Recovered/Not Resolved]
  - Eye ulcer [Not Recovered/Not Resolved]
  - Dry skin [Not Recovered/Not Resolved]
  - Lip pruritus [Not Recovered/Not Resolved]
  - Lip dry [Not Recovered/Not Resolved]
  - Bronchitis [Not Recovered/Not Resolved]

NARRATIVE: CASE EVENT DATE: 201309
